FAERS Safety Report 6215253-7 (Version None)
Quarter: 2009Q2

REPORT INFORMATION
  Report Type: 
  Country: None (occurrence: None)
  Receive Date: 20090604
  Receipt Date: 20090527
  Transmission Date: 20091009
  Serious: Yes (Hospitalization)
  Sender: FDA-Public Use
  Company Number: BE-ABBOTT-09P-013-0576230-00

PATIENT
  Sex: Male
  Weight: 60 kg

DRUGS (10)
  1. HUMIRA [Suspect]
     Indication: RHEUMATOID ARTHRITIS
     Route: 058
     Dates: start: 20040824, end: 20090121
  2. IMURAN [Concomitant]
     Indication: RHEUMATOID ARTHRITIS
  3. PREDNISOLONE [Concomitant]
     Indication: RHEUMATOID ARTHRITIS
     Dosage: DAILY
  4. DUROGENIC [Concomitant]
     Indication: RHEUMATOID ARTHRITIS
  5. MS DIRECT [Concomitant]
     Indication: RHEUMATOID ARTHRITIS
     Dosage: AS REQUIRED
  6. TEGRETOL [Concomitant]
     Indication: DRUG USE FOR UNKNOWN INDICATION
     Dosage: DAILY
  7. NULYTELY [Concomitant]
     Indication: CONSTIPATION
  8. NUCOFEN [Concomitant]
     Indication: EAR PAIN
     Dosage: AS REQUIRED
  9. ELTHYRONE [Concomitant]
     Indication: HYPOTHYROIDISM
  10. VULTRAN [Concomitant]
     Indication: EAR PAIN

REACTIONS (1)
  - METASTATIC SQUAMOUS CELL CARCINOMA [None]
